FAERS Safety Report 6394463-2 (Version None)
Quarter: 2009Q4

REPORT INFORMATION
  Report Type: 
  Country: None (occurrence: None)
  Receive Date: 20091009
  Receipt Date: 20090929
  Transmission Date: 20100525
  Serious: Yes (Hospitalization, Other)
  Sender: FDA-Public Use
  Company Number: US-BIOGENIDEC-201608

PATIENT
  Age: 41 Year
  Sex: Female

DRUGS (2)
  1. AVONEX [Suspect]
     Indication: MULTIPLE SCLEROSIS
     Route: 030
     Dates: start: 20010831, end: 20030501
  2. AVONEX [Suspect]
     Route: 030
     Dates: end: 20050101

REACTIONS (2)
  - BREAST CANCER [None]
  - HEPATIC ENZYME INCREASED [None]
